FAERS Safety Report 11036128 (Version 2)
Quarter: 2015Q2

REPORT INFORMATION
  Report Type: Spontaneous
  Country: US (occurrence: US)
  Receive Date: 20150415
  Receipt Date: 20150525
  Transmission Date: 20150821
  Serious: Yes (Other)
  Sender: FDA-Public Use
  Company Number: US-JNJFOC-20130605051

PATIENT
  Age: 63 Year
  Sex: Female
  Weight: 58.97 kg

DRUGS (2)
  1. LEVOXYL [Concomitant]
     Active Substance: LEVOTHYROXINE SODIUM
     Indication: THYROID DISORDER
     Route: 048
  2. XARELTO [Suspect]
     Active Substance: RIVAROXABAN
     Indication: THROMBOSIS
     Route: 048
     Dates: start: 20130605, end: 20130605

REACTIONS (3)
  - Epistaxis [Recovered/Resolved]
  - Inappropriate schedule of drug administration [Recovered/Resolved]
  - Drug hypersensitivity [Recovered/Resolved]

NARRATIVE: CASE EVENT DATE: 20130605
